FAERS Safety Report 5238383-5 (Version None)
Quarter: 2007Q1

REPORT INFORMATION
  Report Type: 
  Country: None (occurrence: None)
  Receive Date: 20070215
  Receipt Date: 20070207
  Transmission Date: 20070707
  Serious: Yes (Hospitalization)
  Sender: FDA-Public Use
  Company Number: FR-ROCHE-477416

PATIENT
  Age: 60 Year
  Sex: Female

DRUGS (5)
  1. ZENAPAX [Suspect]
     Route: 042
     Dates: start: 20061014, end: 20061014
  2. ZENAPAX [Suspect]
     Route: 042
     Dates: start: 20061025, end: 20061025
  3. FK506 [Suspect]
     Route: 065
     Dates: start: 20061020, end: 20061023
  4. FK506 [Suspect]
     Route: 065
     Dates: start: 20061023, end: 20061025
  5. FK506 [Suspect]
     Dosage: VARIABLE DOSES.
     Route: 065
     Dates: start: 20061025

REACTIONS (1)
  - RENAL FAILURE [None]
